FAERS Safety Report 8510350-5 (Version None)
Quarter: 2012Q3

REPORT INFORMATION
  Report Type: 
  Country: None (occurrence: None)
  Receive Date: 20120713
  Receipt Date: 20120709
  Transmission Date: 20120928
  Serious: Yes (Hospitalization, Other)
  Sender: FDA-Public Use
  Company Number: US-PFIZER INC-2012038321

PATIENT
  Sex: Female
  Weight: 86.168 kg

DRUGS (25)
  1. AZTREONAM [Suspect]
     Indication: CELLULITIS
     Dosage: UNK, 3X/DAY
     Route: 042
     Dates: start: 20120601
  2. METOPROLOL [Concomitant]
     Indication: BLOOD PRESSURE ABNORMAL
     Dosage: UNK
  3. FUROSEMIDE [Concomitant]
  4. THEOPHYLLINE [Concomitant]
  5. DILTIAZEM HYDROCHLORIDE [Concomitant]
  6. SYMBICORT [Concomitant]
     Dosage: 160/4.5
     Route: 055
  7. DALIRESP [Concomitant]
     Dosage: 500 UG, UNK
  8. VENTOLIN HFA [Concomitant]
     Dosage: 108 (90 BASE)MCG
     Route: 055
  9. ALBUTEROL SULFATE [Concomitant]
     Dosage: 0.63MG/3ML, UNK
  10. XOPENEX [Concomitant]
  11. LISINOPRIL [Concomitant]
     Indication: BLOOD PRESSURE ABNORMAL
     Dosage: UNK
  12. COUMADIN [Concomitant]
     Dosage: 5MG/4MG,UNK
  13. SPIRIVA [Concomitant]
  14. NEXIUM [Concomitant]
     Dosage: 40 MG, UNK
  15. EPINEPHRINE [Concomitant]
     Dosage: UNK
  16. XOLAIR [Concomitant]
     Dosage: 02, MONTHLY
     Dates: start: 20100101, end: 20100601
  17. LEVOTHYROXINE SODIUM [Concomitant]
  18. ISOSORBIDE MONONITRATE [Concomitant]
  19. DOXYCYCLINE HYCLATE [Concomitant]
     Dosage: 100 MG, UNK
  20. ACETYLCYSTEINE [Concomitant]
  21. PRAVASTATIN [Concomitant]
     Indication: BLOOD CHOLESTEROL ABNORMAL
     Dosage: 40 MG, DAILY
  22. COREG [Concomitant]
  23. REVATIO [Suspect]
     Indication: PULMONARY HYPERTENSION
     Dosage: 20 MG, 3X/DAY
     Dates: start: 20120201
  24. SINGULAIR [Concomitant]
     Dosage: 10 MG, UNK
  25. GEMFIBROZIL [Concomitant]

REACTIONS (6)
  - COMA [None]
  - LOSS OF CONSCIOUSNESS [None]
  - BLOOD GLUCOSE INCREASED [None]
  - RESPIRATORY ARREST [None]
  - CELLULITIS [None]
  - CONVULSION [None]
